FAERS Safety Report 6666026-2 (Version None)
Quarter: 2010Q2

REPORT INFORMATION
  Report Type: 
  Country: None (occurrence: None)
  Receive Date: 20100402
  Receipt Date: 20100329
  Transmission Date: 20101027
  Serious: Yes (Hospitalization)
  Sender: FDA-Public Use
  Company Number: A0852380A

PATIENT
  Sex: Female

DRUGS (11)
  1. AVANDAMET [Suspect]
     Dosage: 1CAP TWICE PER DAY
     Route: 048
     Dates: start: 20090301, end: 20100301
  2. AVANDIA [Suspect]
     Dosage: 8U TWICE PER DAY
     Route: 048
     Dates: start: 20090301
  3. GLIPIZIDE [Concomitant]
  4. AMLODIPINE [Concomitant]
  5. HYZAAR [Concomitant]
  6. ZOCOR [Concomitant]
  7. SYNTHROID [Concomitant]
  8. FUROSEMIDE [Concomitant]
  9. WARFARIN SODIUM [Concomitant]
  10. POTASSIUM [Concomitant]
  11. TYLENOL-500 [Concomitant]

REACTIONS (2)
  - DYSPNOEA [None]
  - FLUID RETENTION [None]
